FAERS Safety Report 8181888-8 (Version None)
Quarter: 2012Q1

REPORT INFORMATION
  Report Type: 
  Country: None (occurrence: None)
  Receive Date: 20120302
  Receipt Date: 20120227
  Transmission Date: 20120608
  Serious: Yes (Hospitalization)
  Sender: FDA-Public Use
  Company Number: DE-ROCHE-1043825

PATIENT
  Sex: Female

DRUGS (3)
  1. PACLITAXEL [Suspect]
     Indication: BREAST CANCER
     Dosage: DOSE FORM: LIQUID; LAST DOSE PRIOR TO SAE: 15 FEB 2012
     Route: 042
     Dates: start: 20111114, end: 20120222
  2. DOXORUBICIN HCL [Suspect]
     Indication: BREAST CANCER
     Dosage: DOSE FORM: LIQUID; LAST DOSE PRIOR TO SAE: 15 FEB 2012
     Route: 042
     Dates: start: 20111114, end: 20120222
  3. AVASTIN [Suspect]
     Indication: BREAST CANCER
     Dosage: DOSE FORM: LIQUIED; LAST DOSE PRIOR TO SAE: 06 FEB 2012
     Route: 042
     Dates: start: 20111114

REACTIONS (1)
  - PNEUMONIA [None]
